FAERS Safety Report 19490926 (Version 1)
Quarter: 2021Q3

REPORT INFORMATION
  Report Type: Spontaneous
  Country: ES (occurrence: ES)
  Receive Date: 20210705
  Receipt Date: 20210705
  Transmission Date: 20211014
  Serious: Yes (Other)
  Sender: FDA-Public Use
  Company Number: ES-ROCHE-2860055

PATIENT
  Age: 71 Year
  Sex: Female

DRUGS (3)
  1. TOCILIZUMAB. [Suspect]
     Active Substance: TOCILIZUMAB
     Indication: CYTOKINE RELEASE SYNDROME
     Route: 042
     Dates: start: 20210210, end: 20210210
  2. TECARTUS [Suspect]
     Active Substance: BREXUCABTAGENE AUTOLEUCEL
     Indication: LYMPHOMA
     Dosage: 1.6?2.4X10E6?0.4 ? 2 X 10E8 DISPERSION CELLS FOR PERFUSION, 1 BAG OF 68 ML
     Route: 042
     Dates: start: 20210205, end: 20210205
  3. DEXAMETASONA [Suspect]
     Active Substance: DEXAMETHASONE
     Indication: NEUROTOXICITY
     Route: 048
     Dates: start: 20210211, end: 20210319

REACTIONS (1)
  - Depression [Recovered/Resolved]

NARRATIVE: CASE EVENT DATE: 20210302
